FAERS Safety Report 4554446-1 (Version None)
Quarter: 2005Q1

REPORT INFORMATION
  Report Type: 
  Country: None (occurrence: None)
  Receive Date: 20050118
  Receipt Date: 20041124
  Transmission Date: 20050727
  Serious: Yes (Hospitalization, Disabling)
  Sender: FDA-Public Use
  Company Number: FRWYE234625NOV04

PATIENT
  Age: 38 Year
  Sex: Male
  Weight: 65 kg

DRUGS (3)
  1. ENBREL [Suspect]
     Indication: ANKYLOSING SPONDYLITIS
     Route: 058
     Dates: start: 20040820
  2. PHENYLBUTAZONE [Concomitant]
     Route: 048
     Dates: start: 20030901
  3. DI-ANTALVIC [Concomitant]
     Route: 048
     Dates: start: 20030901

REACTIONS (4)
  - EPIDURITIS [None]
  - LUNG ABSCESS [None]
  - PSOAS ABSCESS [None]
  - STAPHYLOCOCCAL SEPSIS [None]
